APPROVED DRUG PRODUCT: NAROPIN
Active Ingredient: ROPIVACAINE HYDROCHLORIDE
Strength: 200MG/20ML (10MG/ML)
Dosage Form/Route: SOLUTION;INJECTION
Application: N020533 | Product #011 | TE Code: AP
Applicant: FRESENIUS KABI USA LLC
Approved: Sep 24, 1996 | RLD: Yes | RS: Yes | Type: RX